FAERS Safety Report 8918277 (Version 1)
Quarter: 2012Q4

REPORT INFORMATION
  Report Type: 
  Country: US (occurrence: US)
  Receive Date: 20121120
  Receipt Date: 20121120
  Transmission Date: 20130627
  Serious: No
  Sender: FDA-Public Use
  Company Number: US-ASTRAZENECA-2012SE25332

PATIENT
  Age: 49 Year
  Sex: Female
  Weight: 72.6 kg

DRUGS (2)
  1. NEXIUM [Suspect]
     Indication: ULCER
     Route: 048
  2. DEPRESSION MEDICATION [Concomitant]

REACTIONS (3)
  - Diarrhoea [Unknown]
  - Proctalgia [Unknown]
  - Haemorrhoids [Unknown]
